FAERS Safety Report 16873589 (Version 1)
Quarter: 2019Q4

REPORT INFORMATION
  Report Type: Spontaneous
  Country: US (occurrence: US)
  Receive Date: 20191001
  Receipt Date: 20191001
  Transmission Date: 20200122
  Serious: Yes (Life-Threatening, Hospitalization, Other)
  Sender: FDA-Public Use
  Company Number: US-SCIEGEN PHARMACEUTICALS INC-2019SCILIT00271

PATIENT
  Age: 73 Year
  Sex: Female

DRUGS (4)
  1. METFORMIN HYDROCHLORIDETABLETS [Suspect]
     Active Substance: METFORMIN HYDROCHLORIDE
  2. REPAGLINIDE. [Suspect]
     Active Substance: REPAGLINIDE
  3. DEXTROSE. [Interacting]
     Active Substance: DEXTROSE
  4. INSULIN GLARGINE [Suspect]
     Active Substance: INSULIN GLARGINE

REACTIONS (3)
  - Encephalopathy [Not Recovered/Not Resolved]
  - Brain injury [Recovering/Resolving]
  - Hypoglycaemia [Unknown]
